FAERS Safety Report 7334040-X (Version None)
Quarter: 2011Q1

REPORT INFORMATION
  Report Type: 
  Country: None (occurrence: None)
  Receive Date: 20110302
  Receipt Date: 20110302
  Transmission Date: 20110831
  Serious: Yes (Other)
  Sender: FDA-Public Use
  Company Number: None

PATIENT
  Sex: Female
  Weight: 90.7194 kg

DRUGS (1)
  1. ALLOPURINOL [Suspect]
     Indication: NEPHROLITHIASIS
     Dosage: 300 MG 1 DAILY BY MOUTH
     Dates: start: 20090401, end: 20090501

REACTIONS (2)
  - NEPHROLITHIASIS [None]
  - OEDEMA PERIPHERAL [None]
